FAERS Safety Report 8573449-3 (Version None)
Quarter: 2012Q2

REPORT INFORMATION
  Report Type: 
  Country: None (occurrence: None)
  Receive Date: 20120423
  Receipt Date: 20101015
  Transmission Date: 20120825
  Serious: Yes (Other)
  Sender: FDA-Public Use
  Company Number: PHHY2010US69650

PATIENT
  Sex: Male
  Weight: 66.6 kg

DRUGS (4)
  1. FOLIC ACID [Concomitant]
  2. DESFERAL [Concomitant]
  3. EXJADE [Suspect]
     Indication: THALASSAEMIA
     Dosage: 1250 MG, ORAL
     Route: 048
     Dates: start: 20100827
  4. LEVOTHYROXINE SODIUM [Concomitant]

REACTIONS (2)
  - HEPATITIS [None]
  - HEPATIC ENZYME INCREASED [None]
